FAERS Safety Report 6678037-1 (Version None)
Quarter: 2010Q2

REPORT INFORMATION
  Report Type: 
  Country: None (occurrence: None)
  Receive Date: 20100409
  Receipt Date: 20100409
  Transmission Date: 20101027
  Serious: No
  Sender: FDA-Public Use
  Company Number: None

PATIENT
  Sex: Male
  Weight: 113.3993 kg

DRUGS (2)
  1. ACCUTANE [Suspect]
     Indication: ACNE CYSTIC
     Dosage: 1 DAILY PO
     Route: 048
     Dates: start: 19991014, end: 20000614
  2. CLARAVIS [Suspect]
     Indication: ACNE CYSTIC
     Dosage: 2 DAILY PO
     Route: 048
     Dates: start: 20041213, end: 20050613

REACTIONS (1)
  - ILL-DEFINED DISORDER [None]
